FAERS Safety Report 7353801-4 (Version None)
Quarter: 2011Q1

REPORT INFORMATION
  Report Type: 
  Country: None (occurrence: None)
  Receive Date: 20110315
  Receipt Date: 20101029
  Transmission Date: 20110831
  Serious: No
  Sender: FDA-Public Use
  Company Number: US-BAYER-201023278BCC

PATIENT
  Sex: Male
  Weight: 84.091 kg

DRUGS (1)
  1. ALEVE [Suspect]
     Indication: PAIN IN EXTREMITY
     Dosage: COUNT BOTTLE 100S
     Route: 048
     Dates: start: 20101001, end: 20111029

REACTIONS (2)
  - NAUSEA [None]
  - NERVOUSNESS [None]
